FAERS Safety Report 11244987 (Version 3)
Quarter: 2016Q1

REPORT INFORMATION
  Report Type: Report from Study
  Country: CA (occurrence: CA)
  Receive Date: 20150707
  Receipt Date: 20160119
  Transmission Date: 20160525
  Serious: Yes (Hospitalization, Other)
  Sender: FDA-Public Use
  Company Number: PHHY2013CA075829

PATIENT
  Age: 64 Year
  Sex: Male

DRUGS (3)
  1. ZOMETA [Suspect]
     Active Substance: ZOLEDRONIC ACID
     Indication: BREAST CANCER
     Dosage: 4 MG, (EVERY FOUR WEEKS)
     Route: 042
     Dates: start: 20121128
  2. PAMIDRONATE [Suspect]
     Active Substance: PAMIDRONATE DISODIUM
     Indication: BREAST CANCER
     Dosage: UNK
     Route: 042
     Dates: end: 201208
  3. ZOMETA [Suspect]
     Active Substance: ZOLEDRONIC ACID
     Dosage: 4 MG, Q3MO (EVERY 3 MONTHS)
     Route: 042
     Dates: end: 20151001

REACTIONS (9)
  - Angiopathy [Unknown]
  - Diabetic ulcer [Not Recovered/Not Resolved]
  - Gait disturbance [Unknown]
  - Mobility decreased [Unknown]
  - Blood pressure diastolic decreased [Unknown]
  - Pain in extremity [Not Recovered/Not Resolved]
  - Infection [Unknown]
  - Poor peripheral circulation [Unknown]
  - Myocardial infarction [Unknown]

NARRATIVE: CASE EVENT DATE: 20150204
